FAERS Safety Report 5455571-3 (Version None)
Quarter: 2007Q3

REPORT INFORMATION
  Report Type: 
  Country: None (occurrence: None)
  Receive Date: 20070918
  Receipt Date: 20070228
  Transmission Date: 20080115
  Serious: No
  Sender: FDA-Public Use
  Company Number: US-ASTRAZENECA-2006UW21970

PATIENT
  Age: 16051 Day
  Sex: Male
  Weight: 131.4 kg

DRUGS (4)
  1. SEROQUEL [Suspect]
     Indication: DEPRESSION
     Route: 048
     Dates: start: 20050315, end: 20060724
  2. STACKERS [Concomitant]
     Indication: WEIGHT CONTROL
  3. RISPERDAL [Concomitant]
     Dates: start: 20050101
  4. ZYPREXA [Concomitant]
     Dates: start: 20020101, end: 20030101

REACTIONS (4)
  - DIABETES MELLITUS [None]
  - HYPERGLYCAEMIA [None]
  - OBESITY [None]
  - TYPE 2 DIABETES MELLITUS [None]
